FAERS Safety Report 4402706-7 (Version None)
Quarter: 2004Q3

REPORT INFORMATION
  Report Type: 
  Country: None (occurrence: None)
  Receive Date: 20040719
  Receipt Date: 20040719
  Transmission Date: 20050211
  Serious: Yes (Other)
  Sender: FDA-Public Use
  Company Number: None

PATIENT
  Age: 39 Year
  Sex: Female
  Weight: 86.1834 kg

DRUGS (1)
  1. METRONIDAZOLE [Suspect]
     Indication: GENITAL INFECTION FEMALE
     Dosage: 500 MG
     Dates: start: 20030801

REACTIONS (3)
  - HYPOACUSIS [None]
  - OTOTOXICITY [None]
  - TINNITUS [None]
